FAERS Safety Report 8906086 (Version 2)
Quarter: 2012Q4

REPORT INFORMATION
  Report Type: 
  Country: US (occurrence: US)
  Receive Date: 20121109
  Receipt Date: 20121203
  Transmission Date: 20130627
  Serious: No
  Sender: FDA-Public Use
  Company Number: US-009507513-1211USA002373

PATIENT
  Sex: Female
  Weight: 58.96 kg

DRUGS (3)
  1. CLARITIN [Suspect]
     Indication: LACRIMATION INCREASED
     Dosage: 10 mg, Unknown
     Route: 048
     Dates: start: 201209
  2. CLARITIN [Suspect]
     Indication: EYE ALLERGY
  3. CLARITIN [Suspect]
     Indication: EYE PRURITUS

REACTIONS (1)
  - Drug ineffective [Unknown]
